FAERS Safety Report 16619738 (Version 1)
Quarter: 2019Q3

REPORT INFORMATION
  Report Type: Spontaneous
  Country: US (occurrence: US)
  Receive Date: 20190723
  Receipt Date: 20190723
  Transmission Date: 20191004
  Serious: Yes (Other)
  Sender: FDA-Public Use
  Company Number: US-JNJFOC-20190717609

PATIENT
  Age: 51 Year
  Sex: Female
  Weight: 56.75 kg

DRUGS (1)
  1. ORTHO TRI CYCLEN [Suspect]
     Active Substance: ETHINYL ESTRADIOL\NORGESTIMATE
     Indication: CONTRACEPTION
     Route: 048
     Dates: start: 2000

REACTIONS (6)
  - Transient ischaemic attack [Unknown]
  - Type 1 diabetes mellitus [Unknown]
  - Restless legs syndrome [Unknown]
  - Depression [Unknown]
  - Weight fluctuation [Unknown]
  - Migraine with aura [Unknown]

NARRATIVE: CASE EVENT DATE: 201901
